FAERS Safety Report 10068884 (Version 2)
Quarter: 2014Q2

REPORT INFORMATION
  Report Type: Spontaneous
  Country: US (occurrence: US)
  Receive Date: 20140409
  Receipt Date: 20140424
  Transmission Date: 20141212
  Serious: Yes (Other)
  Sender: FDA-Public Use
  Company Number: US-JNJFOC-20140402876

PATIENT
  Sex: Female
  Weight: 52.16 kg

DRUGS (17)
  1. NUCYNTA IR [Suspect]
     Indication: PROCEDURAL PAIN
     Route: 048
  2. NUCYNTA IR [Suspect]
     Indication: PROCEDURAL PAIN
     Route: 048
  3. NUCYNTA IR [Suspect]
     Indication: PROCEDURAL PAIN
     Route: 048
  4. NUCYNTA IR [Suspect]
     Indication: PROCEDURAL PAIN
     Route: 048
  5. NUCYNTA IR [Suspect]
     Indication: PROCEDURAL PAIN
     Route: 048
  6. NUCYNTA IR [Suspect]
     Indication: PROCEDURAL PAIN
     Route: 048
  7. NUCYNTA IR [Suspect]
     Indication: PROCEDURAL PAIN
     Route: 048
  8. NUCYNTA IR [Suspect]
     Indication: PROCEDURAL PAIN
     Route: 048
  9. NUCYNTA IR [Suspect]
     Indication: ROAD TRAFFIC ACCIDENT
     Route: 048
  10. NUCYNTA IR [Suspect]
     Indication: ROAD TRAFFIC ACCIDENT
     Route: 048
  11. NUCYNTA IR [Suspect]
     Indication: ROAD TRAFFIC ACCIDENT
     Route: 048
  12. NUCYNTA IR [Suspect]
     Indication: ROAD TRAFFIC ACCIDENT
     Route: 048
  13. BENTYL [Concomitant]
     Indication: GASTRIC DISORDER
     Route: 048
  14. VITAMIN D [Concomitant]
     Indication: NUTRITIONAL SUPPLEMENTATION
     Route: 048
     Dates: start: 2013
  15. CELEBREX [Concomitant]
     Indication: PRODUCT USED FOR UNKNOWN INDICATION
     Route: 048
  16. TOFRINIL [Concomitant]
     Indication: SLEEP DISORDER
     Route: 048
  17. SEROQUEL [Concomitant]
     Indication: SLEEP DISORDER
     Route: 048

REACTIONS (2)
  - Knee arthroplasty [Unknown]
  - Pain [Not Recovered/Not Resolved]
